FAERS Safety Report 19302119 (Version 1)
Quarter: 2021Q2

REPORT INFORMATION
  Report Type: Report from Study
  Country: US (occurrence: US)
  Receive Date: 20210525
  Receipt Date: 20210525
  Transmission Date: 20210717
  Serious: Yes (Other)
  Sender: FDA-Public Use
  Company Number: US-GILEAD-2021-0532620

PATIENT
  Age: 81 Year
  Sex: Female

DRUGS (15)
  1. ASPIRINE [Concomitant]
     Active Substance: ASPIRIN
  2. CEFDINIR. [Concomitant]
     Active Substance: CEFDINIR
  3. AMBRISENTAN [Suspect]
     Active Substance: AMBRISENTAN
     Indication: PULMONARY ARTERIAL HYPERTENSION
     Dosage: 10 MG, QD
     Route: 065
     Dates: start: 20160323
  4. MINERALS [Concomitant]
     Active Substance: MINERALS
  5. VITAMIN D [VITAMIN D NOS] [Concomitant]
     Active Substance: VITAMIN D NOS
  6. ZITHROMAX [Concomitant]
     Active Substance: AZITHROMYCIN DIHYDRATE
  7. TAMIFLU [Concomitant]
     Active Substance: OSELTAMIVIR PHOSPHATE
  8. METOPROLOL. [Concomitant]
     Active Substance: METOPROLOL
  9. NITROGLYCERIN. [Concomitant]
     Active Substance: NITROGLYCERIN
  10. QUINAPRIL. [Concomitant]
     Active Substance: QUINAPRIL
  11. DIGOXIN. [Concomitant]
     Active Substance: DIGOXIN
  12. FUROSEMIDE. [Concomitant]
     Active Substance: FUROSEMIDE
  13. IRON [Concomitant]
     Active Substance: IRON
  14. KLOR?CON [Concomitant]
     Active Substance: POTASSIUM CHLORIDE
  15. SINGULAIR [Concomitant]
     Active Substance: MONTELUKAST SODIUM

REACTIONS (1)
  - Corneal transplant [Recovering/Resolving]

NARRATIVE: CASE EVENT DATE: 202104
